FAERS Safety Report 13838311 (Version 5)
Quarter: 2018Q2

REPORT INFORMATION
  Report Type: Spontaneous
  Country: JP (occurrence: JP)
  Receive Date: 20170807
  Receipt Date: 20180404
  Transmission Date: 20180711
  Serious: Yes (Death, Life-Threatening, Hospitalization, Other)
  Sender: FDA-Public Use
  Company Number: JP-009507513-1707JPN001950J

PATIENT
  Age: 16 Month
  Sex: Male
  Weight: 8.1 kg

DRUGS (34)
  1. VEPESID [Suspect]
     Active Substance: ETOPOSIDE
     Dosage: 27 MG, UNK
     Route: 051
     Dates: start: 20160927, end: 20161001
  2. TEGRETOL [Concomitant]
     Active Substance: CARBAMAZEPINE
     Indication: SEIZURE
     Dosage: 65 MG, UNK
     Route: 048
     Dates: start: 20160829
  3. MEROPENEM. [Concomitant]
     Active Substance: MEROPENEM
     Dosage: 900 MG, UNK
     Route: 051
     Dates: start: 20160913, end: 20160921
  4. FUNGUARD [Concomitant]
     Active Substance: MICAFUNGIN SODIUM
     Indication: PYREXIA
     Dosage: 10 MG, UNK
     Route: 041
     Dates: start: 20160707, end: 20160802
  5. TOBRACIN [Concomitant]
     Active Substance: TOBRAMYCIN
     Dosage: 48 MG, UNK
     Route: 051
     Dates: end: 20160808
  6. GRANISETRON [Concomitant]
     Active Substance: GRANISETRON
     Dosage: 0.4 MG, BID
     Route: 051
     Dates: start: 20160815, end: 20160822
  7. PHENOBARBITAL SODIUM. [Concomitant]
     Active Substance: PHENOBARBITAL SODIUM
     Indication: SEIZURE
     Dosage: 150 MG, UNK
     Route: 051
     Dates: start: 20160913, end: 20160913
  8. VANCOMYCIN [Concomitant]
     Active Substance: VANCOMYCIN
     Indication: SEPSIS
     Dosage: 320 MG, UNK
     Route: 051
     Dates: start: 20160908, end: 20160929
  9. URSO [Concomitant]
     Active Substance: URSODIOL
     Indication: HEPATIC FUNCTION ABNORMAL
     Dosage: 80 MG, UNK
     Route: 048
     Dates: start: 20160812, end: 20161016
  10. ARTIST [Concomitant]
     Active Substance: CARVEDILOL
     Indication: BLOOD PRESSURE DECREASED
     Dosage: UNK
     Route: 048
     Dates: start: 20160908
  11. CEFPIROME SULFATE [Concomitant]
     Active Substance: CEFPIROME SULFATE
     Indication: PYREXIA
     Dosage: 1200 MG, UNK
     Route: 051
     Dates: end: 20160808
  12. CEFPIROME SULFATE [Concomitant]
     Active Substance: CEFPIROME SULFATE
     Dosage: 900 MG, UNK
     Route: 051
     Dates: start: 20160813, end: 20160825
  13. CANCIDAS [Suspect]
     Active Substance: CASPOFUNGIN ACETATE
     Dosage: 28.6 MG, QD
     Route: 041
     Dates: start: 20160908, end: 20160908
  14. BACTRAMIN [Concomitant]
     Active Substance: SULFAMETHOXAZOLE\TRIMETHOPRIM
     Indication: PROPHYLAXIS
     Dosage: 60 MG, UNK
     Route: 048
  15. CANCIDAS [Suspect]
     Active Substance: CASPOFUNGIN ACETATE
     Dosage: 19.76 MG, QD
     Route: 041
     Dates: start: 20160804, end: 20160903
  16. ONCOVIN [Suspect]
     Active Substance: VINCRISTINE SULFATE
     Dosage: 0.41 MG, UNK
     Route: 051
     Dates: start: 20160810, end: 20160810
  17. GRANISETRON [Concomitant]
     Active Substance: GRANISETRON
     Indication: PROPHYLAXIS
     Dosage: 0.4 MG, UNK
     Route: 051
     Dates: start: 20160810, end: 20160810
  18. RIBALL [Concomitant]
     Active Substance: ALLOPURINOL
     Indication: PROPHYLAXIS
     Dosage: 80 MG, UNK
     Route: 048
  19. DOBUTAMINE [Concomitant]
     Active Substance: DOBUTAMINE\DOBUTAMINE HYDROCHLORIDE
     Indication: BLOOD PRESSURE DECREASED
     Dosage: 33.6 MG, UNK
     Route: 051
     Dates: start: 20160904, end: 20160909
  20. DOPAMINE HYDROCHLORIDE. [Concomitant]
     Active Substance: DOPAMINE HYDROCHLORIDE
     Indication: BLOOD PRESSURE DECREASED
     Dosage: 26 MG, UNK
     Route: 051
     Dates: start: 20160815, end: 20160818
  21. VEPESID [Suspect]
     Active Substance: ETOPOSIDE
     Indication: RESPIRATORY FAILURE
     Dosage: 30 MG, UNK
     Route: 051
     Dates: start: 20160815, end: 20160819
  22. GRANISETRON [Concomitant]
     Active Substance: GRANISETRON
     Dosage: 0.4 MG, UNK
     Route: 051
     Dates: start: 20160826, end: 20160826
  23. CANCIDAS [Suspect]
     Active Substance: CASPOFUNGIN ACETATE
     Dosage: 19.76 MG, QD
     Route: 041
     Dates: start: 20160909, end: 20161016
  24. CYLOCIDE [Suspect]
     Active Substance: CYTARABINE
     Indication: RESPIRATORY FAILURE
     Dosage: 60 MG, UNK
     Route: 051
     Dates: start: 20160815, end: 20160821
  25. CYLOCIDE [Suspect]
     Active Substance: CYTARABINE
     Dosage: 53 MG, UNK
     Route: 051
     Dates: start: 20160927, end: 20161003
  26. MEROPENEM. [Concomitant]
     Active Substance: MEROPENEM
     Indication: FEBRILE NEUTROPENIA
     Dosage: 900 MG, UNK
     Route: 051
     Dates: start: 20160825, end: 20160902
  27. MIDAZOLAM [Concomitant]
     Active Substance: MIDAZOLAM HYDROCHLORIDE
     Indication: SEIZURE
     Dosage: 16.8 MG, UNK
     Route: 051
     Dates: start: 20160828
  28. CANCIDAS [Suspect]
     Active Substance: CASPOFUNGIN ACETATE
     Indication: PYREXIA
     Dosage: 28.6 MG, QD
     Route: 041
     Dates: start: 20160803, end: 20160803
  29. MABLIN [Suspect]
     Active Substance: BUSULFAN
     Dosage: 0.5 MG, UNK
     Route: 048
     Dates: start: 20160804, end: 20160817
  30. FUNGUARD [Concomitant]
     Active Substance: MICAFUNGIN SODIUM
     Dosage: 20 MG, UNK
     Route: 051
     Dates: start: 20160904, end: 20160907
  31. GRANISETRON [Concomitant]
     Active Substance: GRANISETRON
     Dosage: 0.4 MG, UNK
     Route: 051
     Dates: start: 20160824, end: 20160824
  32. MINOCYCLINE [Concomitant]
     Active Substance: MINOCYCLINE\MINOCYCLINE HYDROCHLORIDE
     Indication: FEBRILE NEUTROPENIA
     Dosage: 36 MG, UNK
     Route: 051
     Dates: start: 20160822, end: 20160825
  33. ONCOVIN [Suspect]
     Active Substance: VINCRISTINE SULFATE
     Dosage: 0.24 MG, UNK
     Route: 051
     Dates: start: 20160824, end: 20160824
  34. AMIKACIN. [Concomitant]
     Active Substance: AMIKACIN
     Indication: FEBRILE NEUTROPENIA
     Dosage: 120 MG, UNK
     Route: 051
     Dates: start: 20160821, end: 20160823

REACTIONS (17)
  - Pyrexia [Recovered/Resolved]
  - White blood cell count decreased [Not Recovered/Not Resolved]
  - Blood pressure decreased [Recovered/Resolved]
  - Febrile neutropenia [Recovered/Resolved]
  - Hepatic function abnormal [Recovered/Resolved]
  - Haemorrhage intracranial [Not Recovered/Not Resolved]
  - Cardiac failure acute [Recovered/Resolved]
  - Seizure [Not Recovered/Not Resolved]
  - Leukaemic infiltration pulmonary [Fatal]
  - Sepsis [Not Recovered/Not Resolved]
  - Respiratory failure [Fatal]
  - White blood cell count decreased [Recovered/Resolved]
  - Hepatosplenomegaly [Not Recovered/Not Resolved]
  - Respiratory failure [Recovered/Resolved]
  - Seizure [Not Recovered/Not Resolved]
  - Blood pressure decreased [Recovered/Resolved]
  - Central nervous system leukaemia [Not Recovered/Not Resolved]

NARRATIVE: CASE EVENT DATE: 20160810
